FAERS Safety Report 7241638-6 (Version None)
Quarter: 2011Q1

REPORT INFORMATION
  Report Type: 
  Country: None (occurrence: None)
  Receive Date: 20110124
  Receipt Date: 20110113
  Transmission Date: 20110831
  Serious: Yes (Hospitalization)
  Sender: FDA-Public Use
  Company Number: JP-JNJFOC-20100908402

PATIENT
  Sex: Male
  Weight: 90 kg

DRUGS (23)
  1. REMICADE [Suspect]
  2. PREDNISOLONE [Concomitant]
     Route: 048
  3. REMICADE [Suspect]
  4. REMICADE [Suspect]
  5. REMICADE [Suspect]
  6. REMICADE [Suspect]
  7. SANDIMMUNE [Suspect]
     Indication: BEHCET'S SYNDROME
     Route: 048
  8. PREDNISOLONE [Concomitant]
     Indication: BEHCET'S SYNDROME
     Route: 048
  9. REMICADE [Suspect]
  10. PREDNISOLONE [Concomitant]
     Route: 048
  11. XALATAN [Concomitant]
     Indication: BEHCET'S SYNDROME
     Dosage: BOTH EYES
     Route: 047
  12. REMICADE [Suspect]
  13. REMICADE [Suspect]
  14. REMICADE [Suspect]
  15. PREDNISOLONE [Concomitant]
     Route: 048
  16. REMICADE [Suspect]
     Indication: BEHCET'S SYNDROME
  17. REMICADE [Suspect]
  18. REMICADE [Suspect]
  19. ANTIHISTAMINES [Concomitant]
     Indication: PREMEDICATION
  20. PREDNISOLONE [Concomitant]
     Route: 048
  21. REMICADE [Suspect]
     Dosage: 8 INFUSIONS TOTAL
  22. PREDNISOLONE [Concomitant]
     Route: 048
  23. BRONUCK [Concomitant]
     Indication: BEHCET'S SYNDROME
     Dosage: BOTH EYES
     Route: 047

REACTIONS (3)
  - NERVOUS SYSTEM DISORDER [None]
  - LOSS OF CONSCIOUSNESS [None]
  - CENTRAL NERVOUS SYSTEM LESION [None]
